FAERS Safety Report 5916733-1 (Version None)
Quarter: 2008Q4

REPORT INFORMATION
  Report Type: 
  Country: None (occurrence: None)
  Receive Date: 20081013
  Receipt Date: 20081008
  Transmission Date: 20090506
  Serious: Yes (Other)
  Sender: FDA-Public Use
  Company Number: US-PFIZER INC-2008043767

PATIENT
  Sex: Male
  Weight: 82.6 kg

DRUGS (7)
  1. EXUBERA [Suspect]
     Indication: TYPE 1 DIABETES MELLITUS
     Dosage: DAILY DOSE:20MG-TEXT:7MG (AC B); 6MG (AC L); 7MG (AC D)
     Route: 055
     Dates: start: 20020809
  2. LANTUS [Concomitant]
     Route: 058
     Dates: start: 20020101
  3. SIMVASTATIN [Concomitant]
     Route: 048
     Dates: start: 19990101
  4. LISINOPRIL [Concomitant]
     Route: 048
     Dates: start: 19990101
  5. MULTI-VITAMINS [Concomitant]
     Route: 048
     Dates: start: 19970101
  6. VITAMIN B-12 [Concomitant]
     Route: 048
     Dates: start: 20021030
  7. VITAMIN D [Concomitant]
     Route: 048
     Dates: start: 20050515

REACTIONS (1)
  - LUNG NEOPLASM [None]
